FAERS Safety Report 6493430-8 (Version None)
Quarter: 2009Q4

REPORT INFORMATION
  Report Type: 
  Country: None (occurrence: None)
  Receive Date: 20091209
  Receipt Date: 20091124
  Transmission Date: 20100525
  Serious: Yes (Other)
  Sender: FDA-Public Use
  Company Number: 231914K09USA

PATIENT
  Age: 48 Year
  Sex: Female
  Weight: 79 kg

DRUGS (8)
  1. REBIF [Suspect]
     Indication: MULTIPLE SCLEROSIS
     Dosage: 44 MCG, 3 IN1 WEEKS, SUBCUTANEOUS
     Route: 058
     Dates: start: 20080103
  2. CALCIUM (CALCIUM CHLORIDE HEXAHYDRATE) [Concomitant]
  3. METFORMIN (METFORMIN /0082701/) [Concomitant]
  4. LANTUS (INSULIN GLARBINE) [Concomitant]
  5. SIMVASTATIN [Concomitant]
  6. LISINOPRIL AND HYDROCHLOROTHAIZIDE (PRINZIDE /00977901/) [Concomitant]
  7. DILTIAZEM [Concomitant]
  8. METOPROLOL (METOPOLOL /00376901/) [Concomitant]

REACTIONS (4)
  - BASEDOW'S DISEASE [None]
  - FATIGUE [None]
  - FEELING COLD [None]
  - WEIGHT DECREASED [None]
